FAERS Safety Report 7057815-3 (Version None)
Quarter: 2010Q4

REPORT INFORMATION
  Report Type: 
  Country: None (occurrence: None)
  Receive Date: 20101021
  Receipt Date: 20101021
  Transmission Date: 20110411
  Serious: Yes (Other)
  Sender: FDA-Public Use
  Company Number: None

PATIENT
  Age: 5 Year
  Sex: Male
  Weight: 19.9583 kg

DRUGS (1)
  1. ALBUTEROL SULFATE [Suspect]
     Indication: COUGH
     Dosage: 1 VIAL VIA NEBULIZER EVERY 4 HOURS INHAL
     Route: 055
     Dates: start: 20101012, end: 20101016

REACTIONS (3)
  - ABNORMAL BEHAVIOUR [None]
  - EDUCATIONAL PROBLEM [None]
  - TIC [None]
